FAERS Safety Report 10188204 (Version 1)
Quarter: 2014Q2

REPORT INFORMATION
  Report Type: Spontaneous
  Country: NL (occurrence: NL)
  Receive Date: 20140522
  Receipt Date: 20140522
  Transmission Date: 20141212
  Serious: Yes (Other)
  Sender: FDA-Public Use
  Company Number: NL-PFIZER INC-2014137216

PATIENT
  Age: 74 Year
  Sex: Male

DRUGS (6)
  1. VIAGRA [Suspect]
     Dosage: 50 MG, AS NEEDED
  2. LISINOPRIL W/HYDROCHLOROTHIAZIDE [Concomitant]
     Dosage: 20/12.5, UNK
  3. AMLODIPINE [Concomitant]
     Dosage: 5 UNK, UNK
  4. ALFUZOSINE [Concomitant]
     Dosage: 10 UNK, UNK
  5. OMEPRAZOL [Concomitant]
     Dosage: 20 UNK, UNK
  6. VALSARTAN [Concomitant]
     Dosage: 160 UNK, UNK

REACTIONS (1)
  - Retinal vein occlusion [Unknown]
